FAERS Safety Report 7528385-8 (Version None)
Quarter: 2011Q2

REPORT INFORMATION
  Report Type: 
  Country: None (occurrence: None)
  Receive Date: 20110607
  Receipt Date: 20110405
  Transmission Date: 20111010
  Serious: No
  Sender: FDA-Public Use
  Company Number: US-ASTRAZENECA-2011SE19970

PATIENT

DRUGS (1)
  1. PRILOSEC OTC [Suspect]
     Route: 048

REACTIONS (6)
  - FLATULENCE [None]
  - CONSTIPATION [None]
  - BREATH ODOUR [None]
  - HYPOAESTHESIA ORAL [None]
  - ORAL DISORDER [None]
  - PRURITUS GENERALISED [None]
